FAERS Safety Report 10908581 (Version 1)
Quarter: 2015Q1

REPORT INFORMATION
  Report Type: Spontaneous
  Country: US (occurrence: None)
  Receive Date: 20150309
  Receipt Date: 20150309
  Transmission Date: 20150721
  Serious: No
  Sender: FDA-Public Use
  Company Number: None

PATIENT
  Age: 37 Year
  Sex: Female
  Weight: 61.69 kg

DRUGS (13)
  1. DABRAFENIB [Suspect]
     Active Substance: DABRAFENIB
     Indication: METASTATIC MALIGNANT MELANOMA
     Dosage: 1 CAPSULE, BID, ORAL
     Route: 048
     Dates: start: 20141210
  2. OXYCODONE HCL [Concomitant]
     Active Substance: OXYCODONE HYDROCHLORIDE
  3. DABREFENIB MESYLATE [Concomitant]
  4. TRAMETINIB DIMETHYL SULFOXIDE [Concomitant]
     Active Substance: TRAMETINIB DIMETHYL SULFOXIDE
  5. VOLTAREN [Concomitant]
     Active Substance: DICLOFENAC SODIUM
  6. PROMETHAZINE HCL [Concomitant]
     Active Substance: PROMETHAZINE HYDROCHLORIDE
  7. ASPIRIN. [Concomitant]
     Active Substance: ASPIRIN
  8. TRAMETINIB [Suspect]
     Active Substance: TRAMETINIB
     Indication: METASTATIC MALIGNANT MELANOMA
     Dosage: 1 TABLET, QHS/BEDTIME, ORAL
     Route: 048
     Dates: start: 20141210
  9. LEVOTHYROXINE SODIUM. [Concomitant]
     Active Substance: LEVOTHYROXINE SODIUM
  10. ALPRAZOLAM. [Concomitant]
     Active Substance: ALPRAZOLAM
  11. CLONAZEPAM. [Concomitant]
     Active Substance: CLONAZEPAM
  12. ETHYL ALC-ISOPRPALC-MTHALC-MIK LIQD [Concomitant]
  13. TRAMADOL HCL [Concomitant]
     Active Substance: TRAMADOL HYDROCHLORIDE

REACTIONS (4)
  - Visual field defect [None]
  - Eye pain [None]
  - Hypoaesthesia [None]
  - Ocular discomfort [None]

NARRATIVE: CASE EVENT DATE: 20150305
